FAERS Safety Report 6762870-1 (Version None)
Quarter: 2010Q2

REPORT INFORMATION
  Report Type: 
  Country: None (occurrence: None)
  Receive Date: 20100609
  Receipt Date: 20100531
  Transmission Date: 20101027
  Serious: Yes (Other)
  Sender: FDA-Public Use
  Company Number: JP-ASTRAZENECA-2010SE23824

PATIENT
  Age: 31190 Day
  Sex: Female
  Weight: 57 kg

DRUGS (12)
  1. SEROQUEL [Suspect]
     Indication: SENILE PSYCHOSIS
     Route: 048
     Dates: start: 20100108, end: 20100203
  2. SEROQUEL [Suspect]
     Route: 048
     Dates: start: 20100204, end: 20100216
  3. SEROQUEL [Suspect]
     Route: 048
     Dates: start: 20100217, end: 20100319
  4. CANDESARTAN CILEXETIL [Suspect]
     Indication: HYPERTENSION
     Route: 048
     Dates: start: 20100222, end: 20100226
  5. CANDESARTAN CILEXETIL [Suspect]
     Route: 048
     Dates: start: 20100227, end: 20100312
  6. CANDESARTAN CILEXETIL [Suspect]
     Route: 048
     Dates: start: 20100313, end: 20100316
  7. CALBLOCK [Suspect]
     Indication: HYPERTENSION
     Route: 048
     Dates: start: 20100208, end: 20100221
  8. OLMETEC [Suspect]
     Indication: HYPERTENSION
     Route: 048
     Dates: start: 20100208, end: 20100221
  9. CONIEL [Suspect]
     Indication: HYPERTENSION
     Route: 048
     Dates: start: 20100222, end: 20100319
  10. PANTOSIN [Suspect]
     Indication: CONSTIPATION
     Route: 048
     Dates: start: 20100306, end: 20100312
  11. LASIX [Concomitant]
     Indication: OEDEMA PERIPHERAL
     Dates: start: 20100313, end: 20100325
  12. COVERSYL [Concomitant]
     Dates: start: 20100317, end: 20100319

REACTIONS (5)
  - HAEMORRHAGE SUBCUTANEOUS [None]
  - OEDEMA PERIPHERAL [None]
  - PURPURA [None]
  - SKIN ULCER [None]
  - VENOUS ANEURYSM [None]
